FAERS Safety Report 11452045 (Version 1)
Quarter: 2015Q3

REPORT INFORMATION
  Report Type: Spontaneous
  Country: US (occurrence: None)
  Receive Date: 20150902
  Receipt Date: 20150902
  Transmission Date: 20151125
  Serious: No
  Sender: FDA-Public Use
  Company Number: None

PATIENT
  Age: 64 Year
  Sex: Female
  Weight: 72.58 kg

DRUGS (11)
  1. VOLTAREN [Suspect]
     Active Substance: DICLOFENAC SODIUM
     Indication: ARTHRITIS
     Dosage: APPLIED TO A SURFACE, USUALLY THE SKIN
     Dates: start: 20150301, end: 20150430
  2. NEXIUM [Concomitant]
     Active Substance: ESOMEPRAZOLE MAGNESIUM
  3. ASPIRIN. [Concomitant]
     Active Substance: ASPIRIN
  4. ATENOLOL. [Concomitant]
     Active Substance: ATENOLOL
  5. AMLODIPINE [Concomitant]
     Active Substance: AMLODIPINE BESYLATE
  6. CLONIDINE. [Concomitant]
     Active Substance: CLONIDINE
  7. PERCOCET [Concomitant]
     Active Substance: ACETAMINOPHEN\OXYCODONE HYDROCHLORIDE
  8. FOLIC ACID. [Concomitant]
     Active Substance: FOLIC ACID
  9. RANEXA [Concomitant]
     Active Substance: RANOLAZINE
  10. LISINOPRIL. [Concomitant]
     Active Substance: LISINOPRIL
  11. IMDUR [Concomitant]
     Active Substance: ISOSORBIDE MONONITRATE

REACTIONS (9)
  - Nausea [None]
  - Dyspnoea [None]
  - Pruritus [None]
  - Gait disturbance [None]
  - Blister [None]
  - Asthenia [None]
  - Rash [None]
  - Peripheral swelling [None]
  - Cardiac disorder [None]

NARRATIVE: CASE EVENT DATE: 20150501
